FAERS Safety Report 6483830-4 (Version None)
Quarter: 2009Q4

REPORT INFORMATION
  Report Type: 
  Country: None (occurrence: None)
  Receive Date: 20091208
  Receipt Date: 20091208
  Transmission Date: 20100525
  Serious: No
  Sender: FDA-Public Use
  Company Number: None

PATIENT
  Age: 27 Year
  Sex: Male
  Weight: 104.3273 kg

DRUGS (5)
  1. COLD REMEDY NASAL GEL [Suspect]
     Dates: start: 20080901, end: 20090616
  2. HUMULIN 70/30 [Concomitant]
  3. METFORMIN HCL [Concomitant]
  4. CRESTOR [Concomitant]
  5. LISINOPRIL [Concomitant]

REACTIONS (1)
  - ANOSMIA [None]
